FAERS Safety Report 6992082-8 (Version None)
Quarter: 2010Q3

REPORT INFORMATION
  Report Type: 
  Country: None (occurrence: None)
  Receive Date: 20100830
  Receipt Date: 20100621
  Transmission Date: 20110219
  Serious: No
  Sender: FDA-Public Use
  Company Number: 2010077981

PATIENT
  Sex: Male

DRUGS (8)
  1. TOVIAZ [Suspect]
     Indication: HYPERTONIC BLADDER
     Dosage: 4 MG, 1X/DAY, ORAL
     Route: 048
     Dates: start: 20100601
  2. CELECOXIB [Concomitant]
  3. COZAAR [Concomitant]
  4. NORVASC [Concomitant]
  5. OMEPRAZOLE [Concomitant]
  6. PLAVIX [Concomitant]
  7. SIMVASTATIN [Concomitant]
  8. TOLTERODINE TARTRATE [Concomitant]

REACTIONS (2)
  - DRUG INTOLERANCE [None]
  - DRY MOUTH [None]
